FAERS Safety Report 7039228-3 (Version None)
Quarter: 2010Q3

REPORT INFORMATION
  Report Type: 
  Country: None (occurrence: None)
  Receive Date: 20100929
  Receipt Date: 20100804
  Transmission Date: 20110219
  Serious: Yes (Other)
  Sender: FDA-Public Use
  Company Number: US-WYE-H16757210

PATIENT
  Age: 26 Year
  Sex: Female
  Weight: 63.56 kg

DRUGS (1)
  1. PRISTIQ [Suspect]
     Indication: ANXIETY
     Dosage: 50 MG 1X PER 1 DAY, ORAL
     Route: 048
     Dates: start: 20100803

REACTIONS (3)
  - BURNING SENSATION [None]
  - PANIC ATTACK [None]
  - SENSORY DISTURBANCE [None]
